FAERS Safety Report 5057252-7 (Version None)
Quarter: 2006Q3

REPORT INFORMATION
  Report Type: 
  Country: None (occurrence: None)
  Receive Date: 20060721
  Receipt Date: 20050705
  Transmission Date: 20061208
  Serious: No
  Sender: FDA-Public Use
  Company Number: US-GLAXOSMITHKLINE-A0564955A

PATIENT
  Sex: Female

DRUGS (9)
  1. AVANDIA [Suspect]
     Dosage: 4MG PER DAY
     Route: 048
     Dates: start: 20050401
  2. GLUCOPHAGE [Concomitant]
  3. LEXAPRO [Concomitant]
  4. SEROQUEL [Concomitant]
  5. TRILAFON [Concomitant]
  6. ATENOLOL [Concomitant]
  7. LIPITOR [Concomitant]
  8. IBUPROFEN [Concomitant]
  9. WEIGHT LOSS MEDICATION [Concomitant]

REACTIONS (1)
  - WEIGHT INCREASED [None]
